FAERS Safety Report 10577015 (Version 2)
Quarter: 2014Q4

REPORT INFORMATION
  Report Type: Spontaneous
  Country: JP (occurrence: JP)
  Receive Date: 20141111
  Receipt Date: 20141119
  Transmission Date: 20150529
  Serious: Yes (Death, Hospitalization, Other)
  Sender: FDA-Public Use
  Company Number: JP-PFIZER INC-2014308177

PATIENT
  Age: 86 Year
  Sex: Male
  Weight: 49 kg

DRUGS (15)
  1. CALONAL [Concomitant]
     Active Substance: ACETAMINOPHEN
     Indication: ANTIPYRESIS
     Dosage: 400 MG, AS NEEDED
     Route: 048
     Dates: start: 20141021
  2. ZITHROMAC [Suspect]
     Active Substance: AZITHROMYCIN DIHYDRATE
     Indication: BRONCHITIS
     Dosage: 500 MG, DAILY
     Route: 048
     Dates: start: 20141021
  3. AMLODIPINE [Concomitant]
     Active Substance: AMLODIPINE BESYLATE
     Indication: HYPERTENSION
     Dosage: 5 MG, 1X/DAY
     Route: 048
     Dates: start: 20130226
  4. HUSTAZOL [Concomitant]
     Active Substance: CLOPERASTINE
     Indication: BRONCHITIS
  5. CALONAL [Concomitant]
     Active Substance: ACETAMINOPHEN
     Indication: ANALGESIC THERAPY
  6. TRANSAMIN [Concomitant]
     Active Substance: TRANEXAMIC ACID
     Indication: PHARYNGITIS
  7. HUSTAZOL [Concomitant]
     Active Substance: CLOPERASTINE
     Indication: NASOPHARYNGITIS
     Dosage: 10 MG, 3X/DAY
     Route: 048
     Dates: start: 20141021
  8. LANIRAPID [Concomitant]
     Active Substance: METILDIGOXIN
     Indication: ATRIAL FIBRILLATION
     Dosage: 0.05 MG, 1X/DAY
     Route: 048
     Dates: start: 20090612
  9. BAYASPIRIN [Concomitant]
     Active Substance: ASPIRIN
     Indication: ANTIPLATELET THERAPY
     Dosage: 100 MG, 1X/DAY
     Route: 048
     Dates: start: 20120312
  10. ONON [Suspect]
     Active Substance: PRANLUKAST
     Indication: ASTHMA
     Dosage: 225 MG, 2X/DAY
     Route: 048
     Dates: start: 20141021
  11. TAKEPRON [Concomitant]
     Active Substance: LANSOPRAZOLE
     Indication: GASTROOESOPHAGEAL REFLUX DISEASE
     Dosage: 15 MG, 1X/DAY
     Route: 048
     Dates: start: 20120201
  12. LENDORMIN D [Concomitant]
     Active Substance: BROTIZOLAM
     Indication: INSOMNIA
     Dosage: 0.25 MG, 1X/DAY
     Route: 048
     Dates: start: 20140601
  13. MUCODYNE [Concomitant]
     Active Substance: CARBOCYSTEINE
     Indication: BRONCHITIS
     Dosage: 500 MG, 3X/DAY
     Route: 048
     Dates: start: 20141021
  14. DOPACOL [Concomitant]
     Active Substance: CARBIDOPA\LEVODOPA
     Indication: PARKINSONISM
     Dosage: 1 MG, 2X/DAY
     Route: 048
     Dates: start: 20131120
  15. TRANSAMIN [Concomitant]
     Active Substance: TRANEXAMIC ACID
     Indication: NASOPHARYNGITIS
     Dosage: 250 MG, 3X/DAY
     Route: 048
     Dates: start: 20141021

REACTIONS (6)
  - Hepatic function abnormal [Fatal]
  - Vomiting [Unknown]
  - Chest pain [Unknown]
  - Hyperkalaemia [Fatal]
  - Corneal reflex decreased [Unknown]
  - Diarrhoea [Unknown]

NARRATIVE: CASE EVENT DATE: 20141021
